FAERS Safety Report 4485801-6 (Version None)
Quarter: 2004Q4

REPORT INFORMATION
  Report Type: 
  Country: None (occurrence: None)
  Receive Date: 20041022
  Receipt Date: 20041013
  Transmission Date: 20050328
  Serious: Yes (Disabling, Other)
  Sender: FDA-Public Use
  Company Number: 2004-10-0376

PATIENT
  Age: 51 Year
  Sex: Female

DRUGS (1)
  1. INTRON A [Suspect]
     Indication: MALIGNANT MELANOMA
     Dates: start: 20020101

REACTIONS (9)
  - CARCINOMA [None]
  - CRYING [None]
  - DYSPHONIA [None]
  - EPILEPSY [None]
  - FEELING ABNORMAL [None]
  - INSOMNIA [None]
  - NIGHTMARE [None]
  - TREMOR [None]
  - VOMITING [None]
